FAERS Safety Report 20840696 (Version 3)
Quarter: 2022Q4

REPORT INFORMATION
  Report Type: Spontaneous
  Country: US (occurrence: US)
  Receive Date: 20220517
  Receipt Date: 20221220
  Transmission Date: 20230113
  Serious: Yes (Other)
  Sender: FDA-Public Use
  Company Number: US-PFIZER INC-202200581840

PATIENT
  Age: 59 Year
  Sex: Female

DRUGS (3)
  1. XELJANZ XR [Suspect]
     Active Substance: TOFACITINIB CITRATE
     Indication: Rheumatoid arthritis
     Dosage: 11 MG, 1X/DAY
     Route: 048
     Dates: start: 20220211
  2. XELJANZ XR [Suspect]
     Active Substance: TOFACITINIB CITRATE
     Indication: Colitis ulcerative
  3. HYDROXYCHLOROQUINE [Concomitant]
     Active Substance: HYDROXYCHLOROQUINE
     Dosage: UNK

REACTIONS (8)
  - Diverticulitis [Recovering/Resolving]
  - Product dose omission issue [Unknown]
  - Illness [Unknown]
  - Pain in extremity [Not Recovered/Not Resolved]
  - Malaise [Unknown]
  - Arthralgia [Recovering/Resolving]
  - Pain [Unknown]
  - Swelling [Unknown]

NARRATIVE: CASE EVENT DATE: 20220101
